FAERS Safety Report 14679050 (Version 1)
Quarter: 2018Q1

REPORT INFORMATION
  Report Type: Spontaneous
  Country: TR (occurrence: TR)
  Receive Date: 20180326
  Receipt Date: 20180326
  Transmission Date: 20180509
  Serious: Yes (Other)
  Sender: FDA-Public Use
  Company Number: PHHY2018TR045422

PATIENT

DRUGS (1)
  1. OCTREOTIDE. [Suspect]
     Active Substance: OCTREOTIDE
     Indication: FOETAL EXPOSURE DURING PREGNANCY
     Dosage: MATERNAL DOSE: 30 MG FOR 5 WEEKS
     Route: 064

REACTIONS (3)
  - Foetal exposure during pregnancy [Unknown]
  - Macrosomia [Unknown]
  - Premature baby [Unknown]
